FAERS Safety Report 4756595-1 (Version None)
Quarter: 2005Q3

REPORT INFORMATION
  Report Type: 
  Country: None (occurrence: None)
  Receive Date: 20050830
  Receipt Date: 20050822
  Transmission Date: 20060218
  Serious: Yes (Life-Threatening, Hospitalization)
  Sender: FDA-Public Use
  Company Number: GB-ROCHE-415094

PATIENT
  Age: 16 Year
  Sex: Female

DRUGS (1)
  1. LARIAM [Suspect]
     Indication: FOREIGN TRAVEL
     Dosage: THE PATIENT DID NOT TAKE ANY OTHER DRUGS.
     Route: 048
     Dates: start: 20050808, end: 20050808

REACTIONS (5)
  - COMA [None]
  - FALL [None]
  - FOAMING AT MOUTH [None]
  - LOSS OF CONSCIOUSNESS [None]
  - POSTICTAL STATE [None]
